FAERS Safety Report 9322739 (Version 2)
Quarter: 2013Q4

REPORT INFORMATION
  Report Type: Spontaneous
  Country: US (occurrence: US)
  Receive Date: 20130601
  Receipt Date: 20131231
  Transmission Date: 20140711
  Serious: Yes (Hospitalization, Other)
  Sender: FDA-Public Use
  Company Number: US-ASTRAZENECA-2013SE38672

PATIENT
  Age: 64 Year
  Sex: Female
  Weight: 81.6 kg

DRUGS (13)
  1. NEXIUM [Suspect]
     Indication: GASTROOESOPHAGEAL REFLUX DISEASE
     Route: 048
     Dates: start: 20000130, end: 2010
  2. NEXIUM [Suspect]
     Indication: GASTROOESOPHAGEAL REFLUX DISEASE
     Route: 048
     Dates: start: 20060819
  3. ARIMIDEX [Concomitant]
     Indication: BREAST CANCER
  4. VYTORIN [Concomitant]
     Indication: BLOOD CHOLESTEROL INCREASED
     Dosage: 10-40 MG
  5. ATORVASTATIN [Concomitant]
     Indication: BLOOD CHOLESTEROL INCREASED
  6. TRAZODONE [Concomitant]
     Indication: SLEEP DISORDER
  7. LISINOPRIL [Concomitant]
     Indication: BLOOD PRESSURE INCREASED
  8. EFFEXOR [Concomitant]
     Indication: HOT FLUSH
  9. MULTIVITAMIN [Concomitant]
     Dosage: DAILY
  10. PHENTERMINE [Concomitant]
     Indication: APPETITE DISORDER
  11. DYTAN [Concomitant]
     Dates: start: 20061009
  12. TIZANIDINE HCL [Concomitant]
     Dates: start: 20061108
  13. ATENOLOL [Concomitant]
     Dates: start: 20060911

REACTIONS (12)
  - Breast cancer [Unknown]
  - Back disorder [Unknown]
  - Osteoporosis [Unknown]
  - Bone disorder [Unknown]
  - Thoracic vertebral fracture [Unknown]
  - Spinal compression fracture [Unknown]
  - Skin disorder [Unknown]
  - Dehydration [Unknown]
  - Arthritis [Unknown]
  - Calcium deficiency [Unknown]
  - Hypertrophy [Unknown]
  - Fall [Unknown]
